FAERS Safety Report 6501259-7 (Version None)
Quarter: 2009Q4

REPORT INFORMATION
  Report Type: 
  Country: None (occurrence: None)
  Receive Date: 20091216
  Receipt Date: 20091207
  Transmission Date: 20100525
  Serious: Yes (Hospitalization)
  Sender: FDA-Public Use
  Company Number: FR-PFIZER INC-2009290175

PATIENT
  Age: 81 Year
  Sex: Female

DRUGS (9)
  1. TAHOR [Suspect]
     Indication: DYSLIPIDAEMIA
     Dosage: 80 MG, 1X/DAY
     Route: 048
     Dates: end: 20090917
  2. DAPSONE [Suspect]
     Indication: LUPUS-LIKE SYNDROME
     Dosage: 1 DF, 1X/DAY
     Route: 048
     Dates: start: 20090830, end: 20090914
  3. PLAVIX [Suspect]
     Indication: THROMBOSIS PROPHYLAXIS
     Dosage: 75 MG, 1X/DAY
     Route: 048
     Dates: start: 20090828
  4. PLAQUENIL [Suspect]
     Indication: LUPUS-LIKE SYNDROME
     Dosage: 200 MG, 2X/DAY
     Route: 048
     Dates: start: 20090501
  5. KARDEGIC [Concomitant]
     Dosage: 75 MG, UNK
  6. ACEBUTOLOL [Concomitant]
     Dosage: 200 MG, UNK
  7. AMLODIPINE [Concomitant]
     Dosage: 5 MG, UNK
  8. COVERSYL [Concomitant]
     Dosage: 5 MG, UNK
  9. MOPRAL [Concomitant]
     Dosage: 20 MG, UNK

REACTIONS (4)
  - CHOLESTASIS [None]
  - CYTOLYTIC HEPATITIS [None]
  - HAEMOLYTIC ANAEMIA [None]
  - METHAEMOGLOBINAEMIA [None]
